FAERS Safety Report 5120414-4 (Version None)
Quarter: 2006Q4

REPORT INFORMATION
  Report Type: 
  Country: None (occurrence: None)
  Receive Date: 20061004
  Receipt Date: 20060922
  Transmission Date: 20070319
  Serious: Yes (Hospitalization)
  Sender: FDA-Public Use
  Company Number: DK-GLAXOSMITHKLINE-B0439647A

PATIENT
  Age: 6 Year
  Sex: Male
  Weight: 16.7 kg

DRUGS (1)
  1. MALARONE [Suspect]
     Indication: MALARIA PROPHYLAXIS
     Dosage: .5TAB SEE DOSAGE TEXT
     Route: 065
     Dates: start: 20060201

REACTIONS (7)
  - ECCHYMOSIS [None]
  - ERYTHEMA [None]
  - HENOCH-SCHONLEIN PURPURA [None]
  - NIGHT SWEATS [None]
  - PETECHIAE [None]
  - PRESCRIBED OVERDOSE [None]
  - RASH MACULAR [None]
